FAERS Safety Report 14357992 (Version 2)
Quarter: 2018Q1

REPORT INFORMATION
  Report Type: Spontaneous
  Country: JP (occurrence: JP)
  Receive Date: 20180105
  Receipt Date: 20180126
  Transmission Date: 20180509
  Serious: Yes (Other)
  Sender: FDA-Public Use
  Company Number: JP-SUNOVION-2017SUN005542

PATIENT

DRUGS (1)
  1. LUNESTA [Suspect]
     Active Substance: ESZOPICLONE
     Dosage: 1 MG, UNK
     Route: 048

REACTIONS (1)
  - Postoperative delirium [Unknown]
